FAERS Safety Report 24006553 (Version 3)
Quarter: 2024Q3

REPORT INFORMATION
  Report Type: Spontaneous
  Country: US (occurrence: US)
  Receive Date: 20240624
  Receipt Date: 20240817
  Transmission Date: 20241017
  Serious: No
  Sender: SANOFI AVENTIS
  Company Number: US-SA-SAC20240620000217

PATIENT
  Age: 30 Year
  Sex: Female
  Weight: 63 kg

DRUGS (5)
  1. DUPIXENT [Suspect]
     Active Substance: DUPILUMAB
     Indication: Neurodermatitis
     Dosage: 600 MG, 1X
     Route: 058
     Dates: start: 20240531, end: 20240531
  2. DUPIXENT [Suspect]
     Active Substance: DUPILUMAB
     Dosage: 300 MG, QOW
     Route: 058
     Dates: start: 20240621
  3. AZATHIOPRINE [Concomitant]
     Active Substance: AZATHIOPRINE
     Dosage: UNK
  4. IMODIUM A-D [Concomitant]
     Active Substance: LOPERAMIDE HYDROCHLORIDE
     Indication: Diarrhoea
     Dosage: UNK
  5. XOLAIR [Concomitant]
     Active Substance: OMALIZUMAB
     Dosage: UNK

REACTIONS (7)
  - Headache [Not Recovered/Not Resolved]
  - Fatigue [Unknown]
  - Injection site scab [Unknown]
  - Diarrhoea [Unknown]
  - Urticaria [Recovered/Resolved]
  - Dizziness [Unknown]
  - Hypersensitivity [Unknown]

NARRATIVE: CASE EVENT DATE: 20240101
